FAERS Safety Report 4818389-8 (Version None)
Quarter: 2005Q4

REPORT INFORMATION
  Report Type: 
  Country: None (occurrence: None)
  Receive Date: 20051031
  Receipt Date: 20051014
  Transmission Date: 20060501
  Serious: Yes (Hospitalization)
  Sender: FDA-Public Use
  Company Number: 12472

PATIENT
  Age: 76 Year
  Sex: Female
  Weight: 59 kg

DRUGS (3)
  1. CARBOPLATIN [Suspect]
     Indication: SMALL CELL LUNG CANCER STAGE UNSPECIFIED
     Dosage: 480 MG ONCE IV
     Route: 042
     Dates: start: 20050524, end: 20050524
  2. ETOPOSIDE [Suspect]
     Dosage: 170 MG IV
     Route: 042
     Dates: start: 20050524
  3. LANSOPRAZOLE [Concomitant]

REACTIONS (7)
  - COUGH [None]
  - DEHYDRATION [None]
  - NEUTROPENIC SEPSIS [None]
  - RASH [None]
  - RENAL FAILURE ACUTE [None]
  - SPUTUM DISCOLOURED [None]
  - VOMITING [None]
